FAERS Safety Report 23188041 (Version 1)
Quarter: 2023Q4

REPORT INFORMATION
  Report Type: Spontaneous
  Country: US (occurrence: US)
  Receive Date: 20231115
  Receipt Date: 20231115
  Transmission Date: 20240109
  Serious: No
  Sender: FDA-Public Use
  Company Number: US-PFIZER INC-202300358218

PATIENT
  Age: 54 Year
  Sex: Female

DRUGS (23)
  1. XELJANZ XR [Suspect]
     Active Substance: TOFACITINIB CITRATE
     Dosage: 11 MG, DAILY
     Dates: start: 202310
  2. RELISTOR [Concomitant]
     Active Substance: METHYLNALTREXONE BROMIDE
  3. VALIUM [Concomitant]
     Active Substance: DIAZEPAM
  4. TRULICITY [Concomitant]
     Active Substance: DULAGLUTIDE
  5. HUMULIN R [Concomitant]
     Active Substance: INSULIN HUMAN
  6. HUMULIN 70/30 [Concomitant]
     Active Substance: INSULIN HUMAN
  7. CENTRUM SILVER [ASCORBIC ACID;BETACAROTENE;BIOTIN;CALCIUM;CHROMIUM;COL [Concomitant]
  8. CALTRATE [Concomitant]
     Active Substance: CALCIUM CARBONATE
  9. JANUVIA [Concomitant]
     Active Substance: SITAGLIPTIN PHOSPHATE
  10. SOMA [Concomitant]
     Active Substance: CARISOPRODOL
  11. NEXIUM I.V. [Concomitant]
     Active Substance: ESOMEPRAZOLE SODIUM
  12. KLOR-CON [Concomitant]
     Active Substance: POTASSIUM CHLORIDE
  13. OXYCODONE [Concomitant]
     Active Substance: OXYCODONE
  14. TYLENOL [Concomitant]
     Active Substance: ACETAMINOPHEN
  15. ADVIL [Concomitant]
     Active Substance: IBUPROFEN
  16. BACLOFEN [Concomitant]
     Active Substance: BACLOFEN
  17. DOCUSATE [Concomitant]
     Active Substance: DOCUSATE
  18. LIDOCAINE [Concomitant]
     Active Substance: LIDOCAINE
  19. CLARITIN [Concomitant]
     Active Substance: LORATADINE
  20. TORSEMIDE [Concomitant]
     Active Substance: TORSEMIDE
  21. FENTANYL [Concomitant]
     Active Substance: FENTANYL\FENTANYL CITRATE
  22. LISINOPRIL [Concomitant]
     Active Substance: LISINOPRIL
  23. FLAXSEED [Concomitant]
     Active Substance: FLAX SEED

REACTIONS (1)
  - Drug ineffective [Unknown]

NARRATIVE: CASE EVENT DATE: 20231001
